FAERS Safety Report 9167449 (Version 1)
Quarter: 2013Q1

REPORT INFORMATION
  Report Type: Spontaneous
  Country: US (occurrence: None)
  Receive Date: 20130305
  Receipt Date: 20130305
  Transmission Date: 20140127
  Serious: Yes (Hospitalization)
  Sender: FDA-Public Use
  Company Number: 2013P1002596

PATIENT
  Age: 73 Year
  Sex: Female
  Weight: 58.97 kg

DRUGS (6)
  1. ALENDRONATE SODIUM [Suspect]
     Indication: OSTEOPOROSIS
     Route: 048
     Dates: start: 2003
  2. LOSARTAN [Concomitant]
  3. SIMVASTATIN [Concomitant]
  4. BABY ASPIRIN [Concomitant]
  5. CELEBREXX [Concomitant]
  6. CALCIUM [Concomitant]

REACTIONS (4)
  - Stent placement [None]
  - Cough [None]
  - Body height decreased [None]
  - Hip arthroplasty [None]
